FAERS Safety Report 4847862-1 (Version None)
Quarter: 2005Q4

REPORT INFORMATION
  Report Type: 
  Country: None (occurrence: None)
  Receive Date: 20051208
  Receipt Date: 20051116
  Transmission Date: 20060501
  Serious: Yes (Hospitalization, Other)
  Sender: FDA-Public Use
  Company Number: PHBS2005JP16821

PATIENT
  Age: 6 Year
  Sex: Male

DRUGS (5)
  1. PREDNISOLONE [Concomitant]
     Indication: BONE MARROW TRANSPLANT
     Dosage: 1 MG/KG /DAY
  2. PREDNISOLONE [Concomitant]
     Dosage: 2 MG/KG/DAY
  3. PREDNISOLONE [Concomitant]
     Dates: start: 20050101
  4. METHOTREXATE [Concomitant]
     Indication: BONE MARROW TRANSPLANT
     Dates: start: 20040601
  5. NEORAL [Suspect]
     Indication: BONE MARROW TRANSPLANT
     Route: 065
     Dates: start: 20040601

REACTIONS (5)
  - DEPRESSED LEVEL OF CONSCIOUSNESS [None]
  - GRAFT VERSUS HOST DISEASE [None]
  - HYPERTENSION [None]
  - OBLITERATIVE BRONCHIOLITIS [None]
  - REVERSIBLE POSTERIOR LEUKOENCEPHALOPATHY SYNDROME [None]
